FAERS Safety Report 9184788 (Version 2)
Quarter: 2014Q1

REPORT INFORMATION
  Report Type: Report from Study
  Country: CA (occurrence: CA)
  Receive Date: 20130325
  Receipt Date: 20140227
  Transmission Date: 20141002
  Serious: Yes (Death, Hospitalization)
  Sender: FDA-Public Use
  Company Number: CA-ROCHE-1205172

PATIENT
  Age: 34 Year
  Sex: Female

DRUGS (1)
  1. PULMOZYME [Suspect]
     Indication: CYSTIC FIBROSIS
     Dosage: 1 MG/ML
     Route: 048
     Dates: start: 20130222

REACTIONS (2)
  - Lower respiratory tract infection [Unknown]
  - Disease complication [Fatal]
